FAERS Safety Report 5000947-1 (Version None)
Quarter: 2006Q2

REPORT INFORMATION
  Report Type: 
  Country: None (occurrence: None)
  Receive Date: 20060512
  Receipt Date: 20051017
  Transmission Date: 20061013
  Serious: Yes (Death)
  Sender: FDA-Public Use
  Company Number: FR-ROCHE-421378

PATIENT
  Age: 52 Year
  Sex: Male

DRUGS (2)
  1. CAPECITABINE [Suspect]
     Dosage: GIVEN DAYS 1 TO 14.
     Route: 065
  2. OXALIPLATIN [Concomitant]

REACTIONS (5)
  - DIHYDROPYRIMIDINE DEHYDROGENASE DEFICIENCY [None]
  - NEUTROPENIA [None]
  - OESOPHAGITIS [None]
  - RECTAL HAEMORRHAGE [None]
  - THROMBOCYTOPENIA [None]
